FAERS Safety Report 5002567-1 (Version None)
Quarter: 2006Q2

REPORT INFORMATION
  Report Type: 
  Country: None (occurrence: None)
  Receive Date: 20060515
  Receipt Date: 20060410
  Transmission Date: 20061013
  Serious: Yes (Death, Hospitalization)
  Sender: FDA-Public Use
  Company Number: US-MERCK-0604USA01585

PATIENT
  Age: 81 Year
  Sex: Male
  Weight: 73 kg

DRUGS (5)
  1. VIOXX [Suspect]
     Indication: PAIN
     Route: 048
     Dates: start: 20020211, end: 20020219
  2. FLEXERIL [Concomitant]
     Route: 048
  3. BIAXIN [Concomitant]
     Route: 065
  4. ZYPREXA [Concomitant]
     Route: 065
  5. ARICEPT [Concomitant]
     Route: 065

REACTIONS (3)
  - CEREBROVASCULAR ACCIDENT [None]
  - DEATH [None]
  - ISCHAEMIC STROKE [None]
